FAERS Safety Report 25398178 (Version 1)
Quarter: 2025Q2

REPORT INFORMATION
  Report Type: Spontaneous
  Country: US (occurrence: US)
  Receive Date: 20250604
  Receipt Date: 20250604
  Transmission Date: 20250717
  Serious: No
  Sender: SANOFI AVENTIS
  Company Number: US-SA-2025SA156154

PATIENT
  Sex: Female

DRUGS (2)
  1. DUPIXENT [Suspect]
     Active Substance: DUPILUMAB
     Indication: Dyspepsia
     Dosage: 300 MG, QW
     Route: 058
  2. DUPIXENT [Suspect]
     Active Substance: DUPILUMAB
     Indication: Eosinophilic colitis

REACTIONS (9)
  - Drug hypersensitivity [Unknown]
  - Bone pain [Unknown]
  - Arthralgia [Unknown]
  - Burning sensation [Unknown]
  - Pain [Unknown]
  - Pharyngeal swelling [Unknown]
  - Chromaturia [Unknown]
  - Bowel movement irregularity [Unknown]
  - Product use in unapproved indication [Unknown]
